FAERS Safety Report 17496291 (Version 1)
Quarter: 2020Q1

REPORT INFORMATION
  Report Type: Spontaneous
  Country: AR (occurrence: AR)
  Receive Date: 20200304
  Receipt Date: 20200304
  Transmission Date: 20200409
  Serious: Yes (Hospitalization, Other)
  Sender: FDA-Public Use
  Company Number: AR-BRACCO-2020AR00975

PATIENT
  Age: 70 Year
  Sex: Male

DRUGS (3)
  1. BARIUM SULPHATE [Suspect]
     Active Substance: BARIUM SULFATE
     Indication: BARIUM SWALLOW
     Route: 048
  2. PEMETREXED. [Concomitant]
     Active Substance: PEMETREXED
  3. ATEZOLIZUMAB. [Concomitant]
     Active Substance: ATEZOLIZUMAB

REACTIONS (2)
  - Aspiration [Recovering/Resolving]
  - Respiratory failure [Recovering/Resolving]
